FAERS Safety Report 21029781 (Version 1)
Quarter: 2022Q2

REPORT INFORMATION
  Report Type: Report from Study
  Country: US (occurrence: US)
  Receive Date: 20220630
  Receipt Date: 20220630
  Transmission Date: 20220721
  Serious: No
  Sender: FDA-Public Use
  Company Number: US-ACADIA PHARMACEUTICALS INC.-ACA-2022-PIM-002010

PATIENT
  Sex: Male

DRUGS (12)
  1. NUPLAZID [Suspect]
     Active Substance: PIMAVANSERIN TARTRATE
     Indication: Parkinson^s disease
     Dosage: 34 MILLIGRAM
     Route: 048
     Dates: start: 202111
  2. DROXIDOPA [Concomitant]
     Active Substance: DROXIDOPA
  3. SINEMET [Concomitant]
     Active Substance: CARBIDOPA\LEVODOPA
     Dosage: 10-100 10MG-100MG
  4. ZYRTEC [Concomitant]
     Active Substance: CETIRIZINE HYDROCHLORIDE
     Dosage: 10 MILLIGRAM
  5. ATORVASTATIN CALCIUM [Concomitant]
     Active Substance: ATORVASTATIN CALCIUM
     Dosage: 10 MILLIGRAM
  6. FLUDROCORTISONE ACETATE [Concomitant]
     Active Substance: FLUDROCORTISONE ACETATE
  7. TAMSULOSIN HYDROCHLORIDE [Concomitant]
     Active Substance: TAMSULOSIN HYDROCHLORIDE
     Dosage: 0.4 MG
  8. MIDODRINE HYDROCHLORIDE [Concomitant]
     Active Substance: MIDODRINE HYDROCHLORIDE
     Dosage: 10 MILLIGRAM
  9. MIRALAX [Concomitant]
     Active Substance: POLYETHYLENE GLYCOL 3350
     Dosage: 17 G/DOSE
  10. PYRIDOSTIGMINE BROMIDE [Concomitant]
     Active Substance: PYRIDOSTIGMINE BROMIDE
     Dosage: ER
  11. COLACE [Concomitant]
     Active Substance: DOCUSATE SODIUM
     Dosage: 100 MILLIGRAM
  12. AMANTADINE [Concomitant]
     Active Substance: AMANTADINE
     Dosage: 100 MILLIGRAM

REACTIONS (1)
  - Blood pressure increased [Unknown]
